FAERS Safety Report 4686154-0 (Version None)
Quarter: 2005Q2

REPORT INFORMATION
  Report Type: 
  Country: None (occurrence: None)
  Receive Date: 20050609
  Receipt Date: 20050602
  Transmission Date: 20051028
  Serious: Yes (Hospitalization)
  Sender: FDA-Public Use
  Company Number: GB-MERCK-0506GBR00025

PATIENT
  Age: 82 Year
  Sex: Male

DRUGS (5)
  1. PROSCAR [Suspect]
     Indication: BENIGN PROSTATIC HYPERPLASIA
     Route: 048
     Dates: end: 20050512
  2. DUTASTERIDE [Suspect]
     Indication: BENIGN PROSTATIC HYPERPLASIA
     Route: 065
     Dates: end: 20050512
  3. VERAPAMIL [Concomitant]
     Route: 048
  4. WARFARIN [Concomitant]
     Route: 048
  5. ISOSORBIDE MONONITRATE [Concomitant]
     Route: 048

REACTIONS (3)
  - CHEST PAIN [None]
  - COUGH [None]
  - DYSPNOEA [None]
